FAERS Safety Report 7910627-8 (Version None)
Quarter: 2011Q4

REPORT INFORMATION
  Report Type: 
  Country: None (occurrence: None)
  Receive Date: 20111111
  Receipt Date: 20111101
  Transmission Date: 20120403
  Serious: Yes (Other)
  Sender: FDA-Public Use
  Company Number: US-PFIZER INC-2011267926

PATIENT
  Age: 72 Year
  Sex: Male
  Weight: 83 kg

DRUGS (25)
  1. TORISEL [Suspect]
     Indication: MANTLE CELL LYMPHOMA
     Dosage: 25 MG, DAYS 1,8, 15 AND 22
     Route: 042
     Dates: start: 20070111, end: 20071206
  2. RITUXIMAB [Suspect]
     Indication: MANTLE CELL LYMPHOMA
     Dosage: 375 MG/M2
     Route: 042
     Dates: start: 20070111, end: 20071018
  3. ASPIRIN [Concomitant]
  4. MELATONIN [Concomitant]
  5. CLONAZEPAM [Concomitant]
  6. LUTEIN [Concomitant]
  7. MAGNESIUM [Concomitant]
  8. VITAMIN B COMPLEX CAP [Concomitant]
  9. FERROUS GLUCONATE [Concomitant]
  10. VITAMIN E [Concomitant]
  11. FISH OIL [Concomitant]
  12. SYNTHROID [Concomitant]
  13. COENZYME Q10 [Concomitant]
  14. CRANBERRY [Concomitant]
  15. POLYGAM S/D [Concomitant]
  16. IPRATROPIUM [Concomitant]
  17. SILYMARIN [Concomitant]
  18. GREEN TEA EXTRACT [Concomitant]
  19. MULTI-VITAMINS [Concomitant]
  20. VITAMIN D [Concomitant]
  21. CIMETIDINE [Concomitant]
  22. NIACIN [Concomitant]
  23. POTASSIUM [Concomitant]
  24. REVLIMID [Suspect]
     Indication: MANTLE CELL LYMPHOMA
     Dosage: UNK
     Dates: start: 20080101, end: 20100920
  25. PAXIL [Concomitant]

REACTIONS (2)
  - MYELODYSPLASTIC SYNDROME [None]
  - NEOPLASM MALIGNANT [None]
